FAERS Safety Report 12673151 (Version 1)
Quarter: 2016Q3

REPORT INFORMATION
  Report Type: Spontaneous
  Country: ES (occurrence: ES)
  Receive Date: 20160822
  Receipt Date: 20160822
  Transmission Date: 20161109
  Serious: Yes (Other)
  Sender: FDA-Public Use
  Company Number: ES-JNJFOC-20160813271

PATIENT
  Age: 32 Year
  Sex: Male

DRUGS (3)
  1. CALCIPOTRIOL [Suspect]
     Active Substance: CALCIPOTRIENE
     Indication: PSORIASIS
     Dosage: 65 MONTHS
     Route: 065
     Dates: start: 200901, end: 201408
  2. STELARA [Suspect]
     Active Substance: USTEKINUMAB
     Indication: PSORIASIS
     Dosage: 4 MONTHS; INJECTABLE SOLUTION IN A PRE-FILLED SYRINGE, 1 PRE-FILLED SYRINGE OF 0.5 ML
     Route: 058
     Dates: start: 20140227, end: 20140327
  3. ACITRETINA [Suspect]
     Active Substance: ACITRETIN
     Indication: PSORIASIS
     Dosage: 6 MONTHS
     Route: 048
     Dates: start: 20131220, end: 20140227

REACTIONS (1)
  - Hepatitis [Not Recovered/Not Resolved]

NARRATIVE: CASE EVENT DATE: 201406
